FAERS Safety Report 15966635 (Version 1)
Quarter: 2019Q1

REPORT INFORMATION
  Report Type: Spontaneous
  Country: US (occurrence: US)
  Receive Date: 20190215
  Receipt Date: 20190215
  Transmission Date: 20190418
  Serious: Yes (Other)
  Sender: FDA-Public Use
  Company Number: US-HIKMA PHARMACEUTICALS USA INC.-US-H14001-19-01025

PATIENT
  Age: 71 Year
  Sex: Male

DRUGS (3)
  1. WARFARIN [Concomitant]
     Active Substance: WARFARIN
     Indication: ANTICOAGULANT THERAPY
     Dosage: ()
     Route: 065
  2. AMIODARONE [Suspect]
     Active Substance: AMIODARONE
     Indication: VENTRICULAR ARRHYTHMIA
     Dosage: ()
     Route: 065
  3. ACETYLSALICYLIC ACID [Concomitant]
     Active Substance: ASPIRIN
     Indication: ANTIPLATELET THERAPY
     Route: 065

REACTIONS (6)
  - Thrombosis in device [Unknown]
  - Ventricular tachycardia [Unknown]
  - Hyperthyroidism [Not Recovered/Not Resolved]
  - Acute kidney injury [Unknown]
  - Haemorrhage intracranial [Unknown]
  - Encephalopathy [Unknown]

NARRATIVE: CASE EVENT DATE: 2016
